FAERS Safety Report 9381916 (Version 2)
Quarter: 2013Q3

REPORT INFORMATION
  Report Type: Spontaneous
  Country: US (occurrence: US)
  Receive Date: 20130703
  Receipt Date: 20130730
  Transmission Date: 20140515
  Serious: Yes (Other)
  Sender: FDA-Public Use
  Company Number: US-BAYER-2013-078873

PATIENT
  Age: 75 Year
  Sex: Female
  Weight: 73.02 kg

DRUGS (4)
  1. BAYER ADVANCED ASPIRIN EXTRA STRENGTH [Suspect]
     Dosage: 1 DF, PRN
     Route: 048
     Dates: start: 2013
  2. BAYER GENUINE ASPIRIN ORIGINAL STRENGTH [Concomitant]
  3. POTASSIUM [Concomitant]
  4. PREMARIN [Concomitant]

REACTIONS (2)
  - Choking [Recovered/Resolved]
  - Throat irritation [Recovered/Resolved]
